FAERS Safety Report 7691675-2 (Version None)
Quarter: 2011Q3

REPORT INFORMATION
  Report Type: 
  Country: None (occurrence: None)
  Receive Date: 20110818
  Receipt Date: 20110810
  Transmission Date: 20111222
  Serious: Yes (Other)
  Sender: FDA-Public Use
  Company Number: US-GLAXOSMITHKLINE-A0518953A

PATIENT
  Sex: Female

DRUGS (4)
  1. MIRAPEX [Concomitant]
  2. LORAZEPAM [Concomitant]
  3. EFFEXOR [Concomitant]
  4. PAXIL [Suspect]
     Indication: DEPRESSION
     Route: 065

REACTIONS (9)
  - TINNITUS [None]
  - OVERDOSE [None]
  - LOSS OF EMPLOYMENT [None]
  - MEMORY IMPAIRMENT [None]
  - FEELING ABNORMAL [None]
  - ANXIETY [None]
  - WITHDRAWAL SYNDROME [None]
  - SUICIDE ATTEMPT [None]
  - QUALITY OF LIFE DECREASED [None]
